FAERS Safety Report 9482188 (Version 1)
Quarter: 2013Q3

REPORT INFORMATION
  Report Type: Report from Study
  Country: CA (occurrence: CA)
  Receive Date: 20130828
  Receipt Date: 20130828
  Transmission Date: 20140515
  Serious: Yes (Other)
  Sender: FDA-Public Use
  Company Number: CA-JNJFOC-20130814150

PATIENT
  Age: 54 Year
  Sex: Female
  Weight: 112 kg

DRUGS (5)
  1. REMICADE [Suspect]
     Indication: RHEUMATOID ARTHRITIS
     Route: 042
     Dates: start: 200812
  2. ACETYL SALICYLIC ACID [Concomitant]
     Route: 065
  3. DIABETA [Concomitant]
     Dosage: 10
     Route: 065
  4. LIPITOR [Concomitant]
     Route: 065
  5. METHOTREXATE [Concomitant]
     Dosage: X8
     Route: 065

REACTIONS (2)
  - Bronchitis [Unknown]
  - Asthma [Unknown]
